FAERS Safety Report 6390473-X (Version None)
Quarter: 2009Q4

REPORT INFORMATION
  Report Type: 
  Country: None (occurrence: None)
  Receive Date: 20091006
  Receipt Date: 20090922
  Transmission Date: 20100525
  Serious: Yes (Hospitalization)
  Sender: FDA-Public Use
  Company Number: US-MYLANLABS-2009S1016622

PATIENT
  Age: 68 Year
  Sex: Female

DRUGS (2)
  1. PROBENECID [Suspect]
     Indication: DRUG LEVEL
     Route: 048
  2. OSELTAMIVIR [Suspect]
     Indication: DRUG LEVEL
     Route: 048

REACTIONS (1)
  - THROMBOCYTOPENIA [None]
